FAERS Safety Report 9012871 (Version 2)
Quarter: 2013Q1

REPORT INFORMATION
  Report Type: Spontaneous
  Country: US (occurrence: US)
  Receive Date: 20130114
  Receipt Date: 20130121
  Transmission Date: 20140127
  Serious: Yes (Death)
  Sender: FDA-Public Use
  Company Number: CHPA2013US000908

PATIENT
  Age: 90 Year
  Sex: Female

DRUGS (1)
  1. MYOFLEX ANALGESIC CREME [Suspect]
     Indication: MUSCLE SPASMS
     Dosage: UNK, PRN
     Route: 061
     Dates: end: 1989

REACTIONS (2)
  - Cardiac failure congestive [Fatal]
  - Off label use [Unknown]
